FAERS Safety Report 19046739 (Version 1)
Quarter: 2021Q1

REPORT INFORMATION
  Report Type: Spontaneous
  Country: US (occurrence: US)
  Receive Date: 20210323
  Receipt Date: 20210323
  Transmission Date: 20210420
  Serious: Yes (Hospitalization)
  Sender: FDA-Public Use
  Company Number: US-MYLANLABS-2021M1017642

PATIENT
  Age: 4 Decade
  Sex: Male

DRUGS (10)
  1. CARVEDILOL. [Suspect]
     Active Substance: CARVEDILOL
     Indication: MYOCARDITIS
     Dosage: STARTED AT AN UNSPECIFIED DOSAGE
     Route: 065
  2. CLOZAPINE. [Suspect]
     Active Substance: CLOZAPINE
     Dosage: 25 UNK
     Route: 065
  3. CLOZAPINE. [Suspect]
     Active Substance: CLOZAPINE
     Dosage: 25 MILLIGRAM WEEKLY
     Route: 065
  4. PRAVASTATIN. [Concomitant]
     Active Substance: PRAVASTATIN
     Indication: HYPERLIPIDAEMIA
     Dosage: 40 MILLIGRAM, QD, NIGHTLY
     Route: 065
  5. CLOZAPINE. [Suspect]
     Active Substance: CLOZAPINE
     Indication: SCHIZOPHRENIA
     Dosage: NIGHTLY
     Route: 065
  6. CLOZAPINE. [Suspect]
     Active Substance: CLOZAPINE
     Dosage: 100 MILLIGRAM, QD NIGHTLY
     Route: 065
  7. CLOZAPINE. [Suspect]
     Active Substance: CLOZAPINE
     Dosage: 200 UNK
     Route: 065
  8. ESCITALOPRAM [Concomitant]
     Active Substance: ESCITALOPRAM OXALATE
     Indication: SCHIZOPHRENIA
     Dosage: 30 MILLIGRAM, QD
     Route: 065
  9. CARVEDILOL. [Suspect]
     Active Substance: CARVEDILOL
     Dosage: 6.25 MILLIGRAM, BID, AT THE TIME OF DISCHARGE
     Route: 065
  10. DOCUSATE [Concomitant]
     Active Substance: DOCUSATE
     Indication: PRODUCT USED FOR UNKNOWN INDICATION
     Dosage: 100 MILLIGRAM, BID,AS NEEDED
     Route: 065

REACTIONS (3)
  - Myocarditis [Recovered/Resolved]
  - Rebound effect [Recovering/Resolving]
  - Off label use [Unknown]
